FAERS Safety Report 16742195 (Version 1)
Quarter: 2019Q4

REPORT INFORMATION
  Report Type: Spontaneous
  Country: US (occurrence: US)
  Receive Date: 20190826
  Receipt Date: 20190826
  Transmission Date: 20200122
  Serious: Yes (Hospitalization)
  Sender: FDA-Public Use
  Company Number: None

PATIENT
  Age: 56 Year
  Sex: Female

DRUGS (1)
  1. DILTIAZEM 240 XR [Suspect]
     Active Substance: DILTIAZEM
     Indication: BLOOD PRESSURE INADEQUATELY CONTROLLED
     Dosage: ?          QUANTITY:1 CAPSULE(S);?
     Route: 048
     Dates: start: 20190815, end: 20190823

REACTIONS (3)
  - Burning sensation [None]
  - Rash [None]
  - Rash pruritic [None]

NARRATIVE: CASE EVENT DATE: 20190823
